FAERS Safety Report 13680620 (Version 6)
Quarter: 2018Q4

REPORT INFORMATION
  Report Type: Spontaneous
  Country: DE (occurrence: DE)
  Receive Date: 20170623
  Receipt Date: 20181010
  Transmission Date: 20190204
  Serious: Yes (Life-Threatening, Hospitalization, Other)
  Sender: FDA-Public Use
  Company Number: DE-TEVA-781476ACC

PATIENT
  Age: 53 Year
  Sex: Female

DRUGS (5)
  1. COTRIM [Concomitant]
     Active Substance: SULFAMETHOXAZOLE\TRIMETHOPRIM
     Indication: B-CELL DEPLETION THERAPY
     Route: 048
     Dates: end: 20170516
  2. ALLOPURINOL. [Concomitant]
     Active Substance: ALLOPURINOL
     Indication: HYPERURICAEMIA
     Route: 048
     Dates: end: 20170516
  3. PANTOPRAZOLE [Concomitant]
     Active Substance: PANTOPRAZOLE
     Indication: PRODUCT USED FOR UNKNOWN INDICATION
     Dosage: UNK UNK, UNKNOWN FREQ.
     Route: 065
  4. MABTHERA [Interacting]
     Active Substance: RITUXIMAB
     Indication: B-CELL LYMPHOMA
     Dosage: 375 MG/M2 DAILY;
     Route: 042
  5. BENDAMUSTINE HYDROCHLORIDE. [Suspect]
     Active Substance: BENDAMUSTINE HYDROCHLORIDE
     Indication: B-CELL LYMPHOMA
     Route: 042

REACTIONS (12)
  - Capillary leak syndrome [Not Recovered/Not Resolved]
  - Hypotension [Unknown]
  - Pancytopenia [Not Recovered/Not Resolved]
  - Vomiting [Unknown]
  - Angioedema [Not Recovered/Not Resolved]
  - Febrile neutropenia [Unknown]
  - Herpes simplex [Not Recovered/Not Resolved]
  - Drug interaction [Unknown]
  - Rash generalised [Not Recovered/Not Resolved]
  - Prescribed overdose [Unknown]
  - Nausea [Unknown]
  - Anaphylactic reaction [Not Recovered/Not Resolved]

NARRATIVE: CASE EVENT DATE: 20170516
